FAERS Safety Report 11707243 (Version 2)
Quarter: 2015Q4

REPORT INFORMATION
  Report Type: Spontaneous
  Country: US (occurrence: US)
  Receive Date: 20151104
  Receipt Date: 20151110
  Transmission Date: 20160304
  Serious: No
  Sender: FDA-Public Use
  Company Number: US-ELI_LILLY_AND_COMPANY-US201101001855

PATIENT
  Age: 68 Year
  Sex: Female

DRUGS (5)
  1. FORTEO [Suspect]
     Active Substance: TERIPARATIDE
     Dosage: 20 UG, QD
     Dates: start: 20120708, end: 20120708
  2. FORTEO [Suspect]
     Active Substance: TERIPARATIDE
     Indication: OSTEOPOROSIS
     Dosage: 20 UG, QD
     Route: 065
     Dates: start: 2010, end: 201012
  3. FORTEO [Suspect]
     Active Substance: TERIPARATIDE
     Dosage: 20 UG, QD
     Route: 065
  4. FORTEO [Suspect]
     Active Substance: TERIPARATIDE
     Dosage: 20 UG, QD
     Dates: end: 20120705
  5. FORTEO [Suspect]
     Active Substance: TERIPARATIDE
     Dosage: 20 UG, QD
     Route: 065
     Dates: start: 20110106

REACTIONS (10)
  - Intentional product misuse [Recovered/Resolved]
  - Gait disturbance [Unknown]
  - Pruritus [Unknown]
  - Influenza [Unknown]
  - Hypoaesthesia [Unknown]
  - Pain in extremity [Unknown]
  - Malaise [Unknown]
  - Decreased activity [Unknown]
  - Localised infection [Unknown]
  - Viral infection [Unknown]

NARRATIVE: CASE EVENT DATE: 201012
